FAERS Safety Report 6796027-5 (Version None)
Quarter: 2010Q2

REPORT INFORMATION
  Report Type: 
  Country: None (occurrence: None)
  Receive Date: 20100625
  Receipt Date: 20100622
  Transmission Date: 20101027
  Serious: Yes (Other)
  Sender: FDA-Public Use
  Company Number: CA-B.I. PHARMACEUTICALS,INC./RIDGEFIELD-2010-DE-03404GD

PATIENT
  Age: 58 Year
  Sex: Female

DRUGS (4)
  1. PRAMIPEXOLE [Suspect]
     Indication: PARKINSON'S DISEASE
     Dosage: 2.25 MG
     Dates: start: 20050101, end: 20081001
  2. CARBIDOPA AND LEVODOPA [Suspect]
     Indication: PARKINSON'S DISEASE
     Dates: start: 20060101, end: 20080701
  3. CARBIDOPA AND LEVODOPA [Suspect]
     Dosage: LEVODOPA CR INCREASED BY 100 MG TO 600 MG
     Dates: start: 20080701
  4. RASAGILINE [Suspect]
     Indication: PARKINSON'S DISEASE
     Dosage: 1 MG
     Dates: start: 20080101

REACTIONS (4)
  - COMPULSIVE SHOPPING [None]
  - DERMATILLOMANIA [None]
  - SKIN LESION [None]
  - THEFT [None]
